FAERS Safety Report 14830779 (Version 2)
Quarter: 2019Q4

REPORT INFORMATION
  Report Type: Report from Study
  Country: US (occurrence: US)
  Receive Date: 20180430
  Receipt Date: 20191230
  Transmission Date: 20200122
  Serious: No
  Sender: FDA-Public Use
  Company Number: US-SA-2018SA106421

PATIENT
  Age: 67 Year
  Sex: Male

DRUGS (4)
  1. VICTOZA [Suspect]
     Active Substance: LIRAGLUTIDE
     Dosage: UNK UNK,QD
     Route: 065
  2. NIACIN. [Concomitant]
     Active Substance: NIACIN
     Dosage: 1500 MG,QD
  3. ALIROCUMAB [Suspect]
     Active Substance: ALIROCUMAB
     Indication: BLOOD CHOLESTEROL ABNORMAL
  4. ALIROCUMAB [Suspect]
     Active Substance: ALIROCUMAB
     Indication: ARTERIOSCLEROSIS
     Dosage: 75 MG,QOW
     Route: 058
     Dates: start: 20180316, end: 201805

REACTIONS (9)
  - Myalgia [Unknown]
  - Unevaluable event [Not Recovered/Not Resolved]
  - Gastrointestinal pain [Unknown]
  - Chills [Unknown]
  - Blood creatine phosphokinase increased [Unknown]
  - Abdominal discomfort [Not Recovered/Not Resolved]
  - Condition aggravated [Unknown]
  - Gastrointestinal motility disorder [Unknown]
  - Abdominal discomfort [Unknown]

NARRATIVE: CASE EVENT DATE: 2018
